FAERS Safety Report 8890777 (Version 2)
Quarter: 2013Q1

REPORT INFORMATION
  Report Type: Report from Study
  Country: JP (occurrence: JP)
  Receive Date: 20121107
  Receipt Date: 20130205
  Transmission Date: 20140127
  Serious: Yes (Hospitalization, Other)
  Sender: FDA-Public Use
  Company Number: JP-VERTEX PHARMACEUTICAL INC.-AE-2012-009617

PATIENT
  Age: 80 Year
  Sex: Female

DRUGS (20)
  1. VX-950 (TELAPREVIR) [Suspect]
     Indication: CHRONIC HEPATITIS C
     Dosage: 1500 MG, QD
     Route: 048
     Dates: start: 20120427, end: 20120517
  2. REBETOL [Suspect]
     Indication: CHRONIC HEPATITIS C
     Dosage: 400 MG, QD
     Route: 048
     Dates: start: 20120427, end: 20120524
  3. REBETOL [Suspect]
     Dosage: 200 MG, QD
     Route: 048
     Dates: start: 20120525, end: 20120801
  4. REBETOL [Suspect]
     Dosage: 400 MG, QD
     Route: 048
     Dates: start: 20120802, end: 20121010
  5. PEGINTERFERON ALFA-2B [Suspect]
     Indication: CHRONIC HEPATITIS C
     Dosage: 1.5 ?G/KG, QW
     Route: 058
     Dates: start: 20120427, end: 20121003
  6. AMINOMYLAN [Concomitant]
     Dosage: 12.45 G, QD
     Route: 048
  7. LANSOPRAZOLE [Concomitant]
     Dosage: 30 MG, QD
     Route: 048
  8. ONEALFA [Concomitant]
     Dosage: 1 ?G, QD
     Route: 048
  9. DIOVAN [Concomitant]
     Dosage: 160 MG/ DAY, PRN
     Route: 048
  10. DIOVAN [Concomitant]
     Dosage: 160 MG, QD
     Route: 048
  11. MIROBECT [Concomitant]
     Dosage: 50 MG, QD
     Route: 048
  12. AMLODIPINE [Concomitant]
     Dosage: 10 MG, QD
     Route: 048
  13. BERIZYM                            /01945301/ [Concomitant]
     Dosage: 3 G, QD
     Route: 048
  14. ASPARA-CA [Concomitant]
     Dosage: 600 MG, QD
     Route: 048
  15. ANTEBATE [Concomitant]
     Dosage: UNK UNK, PRN
     Route: 061
  16. LIDOMEX [Concomitant]
     Dosage: UNK, PRN
     Route: 061
  17. DEXALTIN [Concomitant]
     Dosage: UNK UNK, PRN
     Route: 061
  18. LOXONIN [Concomitant]
     Dosage: 60 MG/ DAY, PRN
     Route: 048
     Dates: start: 20120427
  19. MUCOSTA [Concomitant]
     Dosage: 100 MG/ DAY, PRN
     Route: 048
     Dates: start: 20120427
  20. UBIRON [Concomitant]
     Dosage: 300 MG, QD
     Route: 048

REACTIONS (3)
  - Renal impairment [Recovered/Resolved]
  - Pancreatitis [Recovered/Resolved]
  - Anaemia [Recovered/Resolved]
